FAERS Safety Report 21537807 (Version 2)
Quarter: 2022Q4

REPORT INFORMATION
  Report Type: Spontaneous
  Country: US (occurrence: US)
  Receive Date: 20221101
  Receipt Date: 20221121
  Transmission Date: 20230113
  Serious: No
  Sender: FDA-Public Use
  Company Number: US-SA-SAC20221029000626

PATIENT
  Age: 21 Year
  Sex: Male

DRUGS (1)
  1. DUPIXENT [Suspect]
     Active Substance: DUPILUMAB
     Indication: Eczema
     Dosage: 300MG, OTHER
     Route: 058
     Dates: start: 202207

REACTIONS (4)
  - Alopecia [Unknown]
  - Injection site pain [Unknown]
  - Drug ineffective [Unknown]
  - Drug effect less than expected [Unknown]
